FAERS Safety Report 4626871-1 (Version None)
Quarter: 2005Q2

REPORT INFORMATION
  Report Type: 
  Country: None (occurrence: None)
  Receive Date: 20050405
  Receipt Date: 20050314
  Transmission Date: 20051028
  Serious: Yes (Life-Threatening, Hospitalization, Other)
  Sender: FDA-Public Use
  Company Number: US-AMGEN-US120510

PATIENT
  Sex: Male

DRUGS (3)
  1. ENBREL [Suspect]
     Indication: RHEUMATOID ARTHRITIS
     Route: 058
     Dates: start: 19990419, end: 20041001
  2. ARAVA [Concomitant]
     Dates: start: 19981201, end: 20041001
  3. PREDNISONE TAB [Concomitant]
     Dates: start: 19981201

REACTIONS (3)
  - DEEP VEIN THROMBOSIS [None]
  - PULMONARY EMBOLISM [None]
  - TUBERCULOMA OF CENTRAL NERVOUS SYSTEM [None]
